FAERS Safety Report 4415016-9 (Version None)
Quarter: 2004Q3

REPORT INFORMATION
  Report Type: 
  Country: None (occurrence: None)
  Receive Date: 20040729
  Receipt Date: 20040723
  Transmission Date: 20050211
  Serious: Yes (Hospitalization)
  Sender: FDA-Public Use
  Company Number: JP-JNJFOC-20040603582

PATIENT
  Age: 65 Year
  Sex: Male

DRUGS (5)
  1. LEVOFLOXACIN [Suspect]
     Indication: PROSTATITIS
     Dosage: 500 MG, ORAL
     Route: 048
     Dates: start: 20040528, end: 20040603
  2. DIAMICRON (GLICLAZIDE) [Concomitant]
  3. TRANDATE [Concomitant]
  4. LEVOTHYROXINE SODIUM [Concomitant]
  5. ALLOPURINOL [Concomitant]

REACTIONS (2)
  - DRUG INEFFECTIVE [None]
  - ERYSIPELAS [None]
